FAERS Safety Report 15158726 (Version 2)
Quarter: 2018Q4

REPORT INFORMATION
  Report Type: Spontaneous
  Country: US (occurrence: US)
  Receive Date: 20180718
  Receipt Date: 20181026
  Transmission Date: 20190204
  Serious: Yes (Other)
  Sender: FDA-Public Use
  Company Number: US-SA-2018SA186923

PATIENT
  Age: 77 Year
  Sex: Female

DRUGS (1)
  1. ENOXAPARIN SODIUM - WINTHROP [Suspect]
     Active Substance: ENOXAPARIN SODIUM
     Indication: THROMBOSIS
     Dosage: 40 MG, QD

REACTIONS (6)
  - Feeling abnormal [Unknown]
  - Headache [Unknown]
  - Pruritus [Unknown]
  - Drug ineffective [Unknown]
  - Contusion [Unknown]
  - Rash [Unknown]
